FAERS Safety Report 17656690 (Version 1)
Quarter: 2020Q2

REPORT INFORMATION
  Report Type: Spontaneous
  Country: DE (occurrence: DE)
  Receive Date: 20200410
  Receipt Date: 20200410
  Transmission Date: 20200713
  Serious: Yes (Death, Hospitalization, Other)
  Sender: FDA-Public Use
  Company Number: DE-AMGEN-DEUSP2020053606

PATIENT

DRUGS (10)
  1. COLISTIN [Concomitant]
     Active Substance: COLISTIN
  2. CYCLOSPORINE. [Concomitant]
     Active Substance: CYCLOSPORINE
  3. FLUCONAZOL [Concomitant]
     Active Substance: FLUCONAZOLE
     Dosage: 200 MILLIGRAM, QD
  4. SMZ-TMP [Concomitant]
     Active Substance: SULFAMETHOXAZOLE\TRIMETHOPRIM
     Dosage: UNK
  5. ITRACONAZOL [Concomitant]
     Active Substance: ITRACONAZOLE
     Dosage: 400 MILLIGRAM, QD
  6. ACYCLOVIR [ACICLOVIR] [Concomitant]
     Active Substance: ACYCLOVIR
  7. BUSULFAN. [Concomitant]
     Active Substance: BUSULFAN
     Dosage: 4 MILLIGRAM/KILOGRAM, QD
  8. CYCLOPHOSPHAMIDE. [Concomitant]
     Active Substance: CYCLOPHOSPHAMIDE
     Dosage: 60 MILLIGRAM/KILOGRAM, QD
  9. NEUPOGEN [Suspect]
     Active Substance: FILGRASTIM
     Indication: PRODUCT USED FOR UNKNOWN INDICATION
     Dosage: UNK
     Route: 065
  10. HEPARIN [Concomitant]
     Active Substance: HEPARIN SODIUM
     Dosage: UNK, QD  (200 U/KG)

REACTIONS (20)
  - Transplant failure [Fatal]
  - Acute respiratory distress syndrome [Fatal]
  - Haemolytic uraemic syndrome [Fatal]
  - Cytomegalovirus infection [Fatal]
  - Sepsis [Unknown]
  - HLA marker study positive [Unknown]
  - Infection [Fatal]
  - Acute graft versus host disease [Fatal]
  - Febrile neutropenia [Unknown]
  - Bone marrow failure [Fatal]
  - Pyrexia [Unknown]
  - Urinary tract infection [Unknown]
  - Aspergillus infection [Fatal]
  - Gastrointestinal infection [Unknown]
  - Herpes simplex [Unknown]
  - Pneumonia [Fatal]
  - Sudden death [Fatal]
  - Device related infection [Unknown]
  - Toxoplasmosis [Fatal]
  - Respiratory tract infection [Unknown]
